FAERS Safety Report 9283354 (Version 1)
Quarter: 2013Q2

REPORT INFORMATION
  Report Type: Spontaneous
  Country: US (occurrence: US)
  Receive Date: 20130510
  Receipt Date: 20130510
  Transmission Date: 20140414
  Serious: No
  Sender: FDA-Public Use
  Company Number: US-GLAXOSMITHKLINE-A1000589A

PATIENT
  Age: 56 Year
  Sex: Female

DRUGS (1)
  1. TYKERB [Suspect]
     Indication: METASTASES TO BREAST
     Dosage: 1000MG IN THE MORNING
     Route: 048

REACTIONS (2)
  - Pain in extremity [Unknown]
  - Pain of skin [Unknown]
